FAERS Safety Report 9625150 (Version 2)
Quarter: 2014Q2

REPORT INFORMATION
  Report Type: Spontaneous
  Country: US (occurrence: US)
  Receive Date: 20131016
  Receipt Date: 20140422
  Transmission Date: 20141212
  Serious: No
  Sender: FDA-Public Use
  Company Number: US-BAYER-2013-124847

PATIENT
  Age: 52 Year
  Sex: Female

DRUGS (2)
  1. BETASERON [Suspect]
     Dosage: 0.25 MG, QOD
     Route: 058
  2. VIACTIV [CALCIUM,COLECALCIFEROL] [Concomitant]

REACTIONS (11)
  - Memory impairment [Unknown]
  - Pain in extremity [Unknown]
  - Muscle tightness [Unknown]
  - Musculoskeletal stiffness [Unknown]
  - Injection site erythema [Unknown]
  - Injection site pain [Unknown]
  - Injection site bruising [Unknown]
  - Pain [Not Recovered/Not Resolved]
  - Fall [None]
  - Muscle twitching [Unknown]
  - Visual impairment [Unknown]
